FAERS Safety Report 8535047-7 (Version None)
Quarter: 2012Q3

REPORT INFORMATION
  Report Type: 
  Country: None (occurrence: None)
  Receive Date: 20120724
  Receipt Date: 20120717
  Transmission Date: 20120928
  Serious: Yes (Hospitalization, Other)
  Sender: FDA-Public Use
  Company Number: US-PFIZER INC-2012134763

PATIENT
  Sex: Female
  Weight: 67.574 kg

DRUGS (6)
  1. SUTENT [Suspect]
     Indication: LUNG DISORDER
  2. SUTENT [Suspect]
     Indication: RENAL CANCER
     Dosage: 50 MG, CYCLIC, 1X/DAY (DAILY)
     Dates: start: 20120601
  3. ONDANSETRON [Concomitant]
     Indication: PROPHYLAXIS OF NAUSEA AND VOMITING
     Dosage: UNK
  4. SUTENT [Suspect]
     Indication: LUNG CANCER METASTATIC
  5. BENAZEPRIL [Concomitant]
     Indication: HYPERTENSION
     Dosage: 10 MG, 1X/DAY (DAILY)
  6. SUTENT [Suspect]
     Indication: METASTATIC RENAL CELL CARCINOMA

REACTIONS (9)
  - BRAIN NEOPLASM [None]
  - CONVULSION [None]
  - NAUSEA [None]
  - NEOPLASM MALIGNANT [None]
  - SEASONAL ALLERGY [None]
  - NASOPHARYNGITIS [None]
  - COUGH [None]
  - VIITH NERVE PARALYSIS [None]
  - VOMITING [None]
